FAERS Safety Report 5450453-5 (Version None)
Quarter: 2007Q3

REPORT INFORMATION
  Report Type: 
  Country: None (occurrence: None)
  Receive Date: 20070912
  Receipt Date: 20070905
  Transmission Date: 20080115
  Serious: Yes (Hospitalization)
  Sender: FDA-Public Use
  Company Number: GB-ROXANE LABORATORIES, INC-2007-BP-20657RO

PATIENT
  Age: 54 Year
  Sex: Male

DRUGS (6)
  1. METHADONE [Suspect]
     Route: 048
  2. METHADONE [Suspect]
     Route: 042
  3. MORPHINE [Concomitant]
     Indication: ANALGESIA
     Route: 030
  4. ANTI-EMETIC [Concomitant]
     Indication: ANTIEMETIC SUPPORTIVE CARE
  5. POTASSIUM CHLORIDE [Concomitant]
     Indication: MINERAL SUPPLEMENTATION
     Route: 042
  6. LORAZEPAM [Concomitant]
     Indication: ALCOHOL WITHDRAWAL SYNDROME

REACTIONS (13)
  - ABDOMINAL PAIN UPPER [None]
  - ACUTE RESPIRATORY FAILURE [None]
  - ALCOHOL WITHDRAWAL SYNDROME [None]
  - CARDIAC ARREST [None]
  - COLLAPSE OF LUNG [None]
  - ELECTROCARDIOGRAM QT PROLONGED [None]
  - HYPOKALAEMIA [None]
  - LEFT VENTRICULAR HYPERTROPHY [None]
  - SUPRAVENTRICULAR EXTRASYSTOLES [None]
  - TORSADE DE POINTES [None]
  - VENTRICULAR EXTRASYSTOLES [None]
  - VENTRICULAR FIBRILLATION [None]
  - VOMITING [None]
